FAERS Safety Report 8149246 (Version 3)
Quarter: 2013Q3

REPORT INFORMATION
  Report Type: Spontaneous
  Country: US (occurrence: US)
  Receive Date: 20110922
  Receipt Date: 20130913
  Transmission Date: 20140515
  Serious: Yes (Other)
  Sender: FDA-Public Use
  Company Number: US-ASTRAZENECA-2011SE12653

PATIENT
  Age: 11618 Day
  Sex: Male

DRUGS (10)
  1. SEROQUEL [Suspect]
     Route: 048
  2. SEROQUEL [Suspect]
     Route: 048
     Dates: start: 20020131
  3. SEROQUEL [Suspect]
     Route: 048
     Dates: start: 20020206
  4. HALDOL [Concomitant]
     Route: 048
     Dates: end: 19971014
  5. HALDOL [Concomitant]
     Dosage: 5 MG QD PRN
     Dates: start: 19980217
  6. COGENTIN [Concomitant]
     Dosage: 1 MG QAM PRN AND 1 MG QHS
     Route: 048
     Dates: start: 19980217
  7. ATIVAN [Concomitant]
     Dates: start: 20020218
  8. TERBUTALINE [Concomitant]
     Dates: start: 20020303
  9. RISPERIDONE [Concomitant]
     Dates: start: 2001
  10. GEODON [Concomitant]
     Dates: start: 20121216

REACTIONS (4)
  - Pancreatitis [Unknown]
  - Diabetic coma [Unknown]
  - Type 2 diabetes mellitus [Unknown]
  - Drug hypersensitivity [Unknown]
